FAERS Safety Report 9695975 (Version 1)
Quarter: 2013Q4

REPORT INFORMATION
  Report Type: Other
  Country: JP (occurrence: JP)
  Receive Date: 20131119
  Receipt Date: 20131119
  Transmission Date: 20140711
  Serious: Yes (Death, Hospitalization)
  Sender: FDA-Public Use
  Company Number: JP-BRISTOL-MYERS SQUIBB COMPANY-19811892

PATIENT
  Age: 27 Year
  Sex: Female

DRUGS (2)
  1. PACLITAXEL [Suspect]
     Indication: BREAST CANCER STAGE IV
     Dosage: DAY 1,8 + 15?80MG/M2
  2. BEVACIZUMAB [Suspect]
     Indication: BREAST CANCER STAGE IV
     Dosage: DAY 1 AND 15

REACTIONS (3)
  - Lymphangiosis carcinomatosa [Fatal]
  - Tumour necrosis [Unknown]
  - Tumour haemorrhage [Unknown]
